FAERS Safety Report 11050314 (Version 2)
Quarter: 2015Q2

REPORT INFORMATION
  Report Type: Spontaneous
  Country: US (occurrence: US)
  Receive Date: 20150421
  Receipt Date: 20150511
  Transmission Date: 20150821
  Serious: Yes (Other)
  Sender: FDA-Public Use
  Company Number: US-BEH-2015050358

PATIENT
  Age: 21 Year
  Sex: Female
  Weight: 81 kg

DRUGS (10)
  1. EPIPEN [Concomitant]
     Active Substance: EPINEPHRINE
  2. KALBITOR [Concomitant]
     Active Substance: ECALLANTIDE
  3. FIRAZYR [Concomitant]
     Active Substance: ICATIBANT ACETATE
  4. BERINERT [Suspect]
     Active Substance: HUMAN C1-ESTERASE INHIBITOR
     Indication: COMPLEMENT FACTOR ABNORMAL
     Dosage: 500 UNIT VIAL ; THREE TIMES A WEEK ON DEMAND AS DIRECTED
     Route: 042
  5. DIPHENHYDRAMINE [Concomitant]
     Active Substance: DIPHENHYDRAMINE
  6. PREDNISONE. [Concomitant]
     Active Substance: PREDNISONE
  7. BERINERT [Suspect]
     Active Substance: HUMAN C1-ESTERASE INHIBITOR
     Indication: HEREDITARY ANGIOEDEMA
     Dosage: 500 UNIT VIAL ; THREE TIMES A WEEK ON DEMAND AS DIRECTED
     Route: 042
  8. CEFTIN [Concomitant]
     Active Substance: CEFUROXIME AXETIL
  9. RUCONEST [Concomitant]
     Active Substance: HUMAN C1-ESTERASE INHIBITOR
  10. SODIUM CHLORIDE. [Concomitant]
     Active Substance: SODIUM CHLORIDE

REACTIONS (2)
  - Hereditary angioedema [Unknown]
  - Eye swelling [Unknown]

NARRATIVE: CASE EVENT DATE: 201503
